FAERS Safety Report 25740952 (Version 6)
Quarter: 2025Q4

REPORT INFORMATION
  Report Type: Spontaneous
  Country: US (occurrence: US)
  Receive Date: 20250829
  Receipt Date: 20251010
  Transmission Date: 20260118
  Serious: No
  Sender: KARYOPHARM THERAPEUTICS
  Company Number: US-KARYOPHARM-2025KPT100677

PATIENT

DRUGS (6)
  1. SELINEXOR [Suspect]
     Active Substance: SELINEXOR
     Indication: Plasma cell myeloma
     Dosage: 80 MG WEEKLY
     Route: 048
     Dates: start: 20250825, end: 2025
  2. SELINEXOR [Suspect]
     Active Substance: SELINEXOR
     Dosage: 60 MG WEEKLY
     Route: 048
     Dates: start: 2025
  3. ACYCLOVIR [Concomitant]
     Active Substance: ACYCLOVIR
  4. DEXAMETHASONE [Concomitant]
     Active Substance: DEXAMETHASONE
  5. OLANZAPINE [Concomitant]
     Active Substance: OLANZAPINE
  6. PERCOCET [Concomitant]
     Active Substance: ACETAMINOPHEN\OXYCODONE HYDROCHLORIDE

REACTIONS (7)
  - Pain [Unknown]
  - Cytopenia [Unknown]
  - Nausea [Not Recovered/Not Resolved]
  - Diarrhoea [Unknown]
  - Decreased appetite [Unknown]
  - Fatigue [Unknown]
  - Product dose omission issue [Unknown]

NARRATIVE: CASE EVENT DATE: 20250101
